FAERS Safety Report 6861568-9 (Version None)
Quarter: 2010Q3

REPORT INFORMATION
  Report Type: 
  Country: None (occurrence: None)
  Receive Date: 20100721
  Receipt Date: 20100709
  Transmission Date: 20110219
  Serious: Yes (Other)
  Sender: FDA-Public Use
  Company Number: JP-BAYER-201012594BYL

PATIENT
  Age: 86 Year
  Sex: Female

DRUGS (5)
  1. MAGNEVIST [Suspect]
     Indication: NUCLEAR MAGNETIC RESONANCE IMAGING BRAIN
     Dosage: TOTAL DAILY DOSE: 10 ML
     Route: 042
     Dates: start: 20100512, end: 20100512
  2. AMLODIN OD [Concomitant]
     Indication: PRODUCT USED FOR UNKNOWN INDICATION
     Dosage: UNIT DOSE: 2.5 MG
     Route: 048
  3. ONEALFA [Concomitant]
     Indication: PRODUCT USED FOR UNKNOWN INDICATION
     Dosage: UNIT DOSE: 0.5 ?G
     Route: 048
  4. LAC B [Concomitant]
     Indication: PRODUCT USED FOR UNKNOWN INDICATION
     Dosage: UNIT DOSE: 1 G
     Route: 048
  5. PREDONINE [Concomitant]
     Indication: BRAIN OEDEMA
     Dosage: UNIT DOSE: 5 MG
     Route: 048
     Dates: start: 20100421, end: 20100529

REACTIONS (1)
  - HEPATIC FUNCTION ABNORMAL [None]
